FAERS Safety Report 8098284-4 (Version None)
Quarter: 2012Q1

REPORT INFORMATION
  Report Type: 
  Country: None (occurrence: None)
  Receive Date: 20120128
  Receipt Date: 20110805
  Transmission Date: 20120608
  Serious: No
  Sender: FDA-Public Use
  Company Number: US-ABBOTT-11P-163-0844641-00

PATIENT
  Sex: Female
  Weight: 127.12 kg

DRUGS (5)
  1. ARAVA [Concomitant]
     Indication: RHEUMATOID ARTHRITIS
  2. HUMIRA [Suspect]
     Indication: RHEUMATOID ARTHRITIS
     Dates: start: 20110727, end: 20110727
  3. PLAQUENIL [Concomitant]
     Indication: RHEUMATOID ARTHRITIS
  4. FLORINEF [Concomitant]
     Indication: RHEUMATOID ARTHRITIS
  5. FOLIC ACID [Concomitant]
     Indication: VITAMIN SUPPLEMENTATION

REACTIONS (7)
  - HYPOAESTHESIA ORAL [None]
  - DIZZINESS [None]
  - NAUSEA [None]
  - FLUSHING [None]
  - HOT FLUSH [None]
  - HYPOAESTHESIA [None]
  - FEELING ABNORMAL [None]
